FAERS Safety Report 6753054-1 (Version None)
Quarter: 2010Q2

REPORT INFORMATION
  Report Type: 
  Country: None (occurrence: None)
  Receive Date: 20100603
  Receipt Date: 20100530
  Transmission Date: 20101027
  Serious: Yes (Hospitalization)
  Sender: FDA-Public Use
  Company Number: US-JNJFOC-20100600083

PATIENT
  Sex: Female
  Weight: 79.38 kg

DRUGS (1)
  1. DURAGESIC-100 [Suspect]
     Indication: ANALGESIC THERAPY
     Dosage: 100 MCG/ HR AND 75 MCG/ HR
     Route: 062

REACTIONS (1)
  - INTERVERTEBRAL DISC DEGENERATION [None]
